FAERS Safety Report 16887511 (Version 3)
Quarter: 2019Q4

REPORT INFORMATION
  Report Type: Spontaneous
  Country: PT (occurrence: PT)
  Receive Date: 20191004
  Receipt Date: 20191207
  Transmission Date: 20200122
  Serious: Yes (Hospitalization, Other)
  Sender: FDA-Public Use
  Company Number: PT-AUROBINDO-AUR-APL-2019-064476

PATIENT
  Age: 75 Year
  Sex: Male

DRUGS (4)
  1. CALCIUM HEPARIN [Concomitant]
     Indication: PROPHYLAXIS
     Dosage: UNK
     Route: 065
  2. ACETYLSALICYLIC ACID [Suspect]
     Active Substance: ASPIRIN
     Indication: PRODUCT USED FOR UNKNOWN INDICATION
     Dosage: UNK
     Route: 065
  3. CLOPIDOGREL [Suspect]
     Active Substance: CLOPIDOGREL BISULFATE
     Indication: PRODUCT USED FOR UNKNOWN INDICATION
     Dosage: UNK
     Route: 065
  4. ACETYLSALICYLIC ACID [Suspect]
     Active Substance: ASPIRIN
     Dosage: POSTOPERATIVE INTENSE CARE UNIT TREATMENT
     Route: 065

REACTIONS (5)
  - Gastrointestinal haemorrhage [Unknown]
  - Post procedural haemorrhage [Unknown]
  - Labelled drug-drug interaction medication error [Unknown]
  - Haematochezia [Unknown]
  - Contraindicated product administered [Unknown]
